FAERS Safety Report 19777444 (Version 1)
Quarter: 2021Q3

REPORT INFORMATION
  Report Type: Spontaneous
  Country: US (occurrence: US)
  Receive Date: 20210830
  Receipt Date: 20210830
  Transmission Date: 20211014
  Serious: Yes (Death)
  Sender: FDA-Public Use
  Company Number: None

PATIENT
  Sex: Male

DRUGS (1)
  1. ONDANSETRON HCL 8MG GLENMARK PHARMACEUTICALS [Suspect]
     Active Substance: ONDANSETRON HYDROCHLORIDE
     Indication: RENAL CANCER
     Route: 048
     Dates: start: 20210414

REACTIONS (3)
  - Vomiting [None]
  - Soft tissue sarcoma [None]
  - Nausea [None]
